FAERS Safety Report 11630285 (Version 3)
Quarter: 2015Q4

REPORT INFORMATION
  Report Type: Spontaneous
  Country: US (occurrence: US)
  Receive Date: 20151014
  Receipt Date: 20151019
  Transmission Date: 20160304
  Serious: Yes (Death, Life-Threatening, Hospitalization, Disabling, Other)
  Sender: FDA-Public Use
  Company Number: US-009507513-1510USA006232

PATIENT
  Sex: Female
  Weight: 91.61 kg

DRUGS (4)
  1. KOMBIGLYZE XR [Suspect]
     Active Substance: METFORMIN HYDROCHLORIDE\SAXAGLIPTIN HYDROCHLORIDE
     Indication: TYPE 2 DIABETES MELLITUS
     Dosage: 5/500 MG,BID
     Route: 048
     Dates: start: 20120410, end: 20130110
  2. JANUMET [Suspect]
     Active Substance: METFORMIN HYDROCHLORIDE\SITAGLIPTIN PHOSPHATE
     Indication: TYPE 2 DIABETES MELLITUS
     Dosage: 50 MG/500 MG, BID
     Route: 048
     Dates: start: 20081218, end: 20100512
  3. ONGLYZA [Suspect]
     Active Substance: SAXAGLIPTIN HYDROCHLORIDE
     Indication: TYPE 2 DIABETES MELLITUS
     Dosage: 5 MG, QD
     Route: 048
     Dates: start: 20100505, end: 20120216
  4. JANUVIA [Suspect]
     Active Substance: SITAGLIPTIN PHOSPHATE
     Indication: TYPE 2 DIABETES MELLITUS
     Dosage: 100 MG, QD
     Route: 048
     Dates: start: 20071126, end: 20080531

REACTIONS (29)
  - Generalised oedema [Unknown]
  - Drug hypersensitivity [Unknown]
  - Acute kidney injury [Unknown]
  - Ulcer [Unknown]
  - Respiratory disorder [Unknown]
  - Pneumonia klebsiella [Recovering/Resolving]
  - Candiduria [Unknown]
  - Vertigo [Unknown]
  - Sepsis [Unknown]
  - Neuropathy peripheral [Unknown]
  - Pancreatic carcinoma metastatic [Unknown]
  - Anaemia [Unknown]
  - Ventricular tachycardia [Unknown]
  - Death [Fatal]
  - Deep vein thrombosis [Unknown]
  - Blindness [Unknown]
  - Small intestinal obstruction [Recovering/Resolving]
  - Oesophageal varices haemorrhage [Recovered/Resolved]
  - Gallbladder neoplasm [Unknown]
  - Pancreatitis [Unknown]
  - Soft tissue mass [Unknown]
  - Diabetic neuropathy [Unknown]
  - Metastases to liver [Unknown]
  - Metastases to peritoneum [Unknown]
  - Cholecystitis [Unknown]
  - Bile duct stenosis [Unknown]
  - Diabetes mellitus inadequate control [Unknown]
  - Cystic fibrosis [Unknown]
  - Pneumonia [Unknown]

NARRATIVE: CASE EVENT DATE: 20121202
